FAERS Safety Report 7039269-6 (Version None)
Quarter: 2010Q4

REPORT INFORMATION
  Report Type: 
  Country: None (occurrence: None)
  Receive Date: 20101006
  Receipt Date: 20100922
  Transmission Date: 20110411
  Serious: Yes (Life-Threatening)
  Sender: FDA-Public Use
  Company Number: 2010S1000199

PATIENT

DRUGS (4)
  1. INOMAX [Suspect]
     Dosage: 60 PPM;CONT;INH, 80 PPM;CONT;INH
     Route: 055
     Dates: end: 20100922
  2. INOMAX [Suspect]
     Dosage: 60 PPM;CONT;INH, 80 PPM;CONT;INH
     Route: 055
     Dates: start: 20100922
  3. INOMAX [Suspect]
     Dosage: 60 PPM;CONT;INH, 8- PPM;CONT;INH
     Route: 055
     Dates: end: 20100922
  4. INOMAX [Suspect]
     Dosage: 60 PPM;CONT;INH, 8- PPM;CONT;INH
     Route: 055
     Dates: start: 20100922

REACTIONS (2)
  - CARDIAC ARREST [None]
  - DEVICE FAILURE [None]
